FAERS Safety Report 23487068 (Version 1)
Quarter: 2024Q1

REPORT INFORMATION
  Report Type: Spontaneous
  Country: CN (occurrence: CN)
  Receive Date: 20240206
  Receipt Date: 20240206
  Transmission Date: 20240409
  Serious: Yes (Other)
  Sender: FDA-Public Use
  Company Number: CN-PFIZER INC-202400032862

PATIENT
  Age: 54 Year
  Sex: Male

DRUGS (3)
  1. TOFACITINIB CITRATE [Suspect]
     Active Substance: TOFACITINIB CITRATE
     Indication: Colitis ulcerative
     Dosage: 5 MG, 2X/DAY
     Route: 048
     Dates: start: 20210520
  2. VEDOLIZUMAB [Suspect]
     Active Substance: VEDOLIZUMAB
     Indication: Colitis ulcerative
     Dosage: 300 MG, AT WEEK 0, 2, AND 6, FOLLOWED BY EVERY 8 WEEKS
     Route: 042
     Dates: start: 20210520
  3. VANCOMYCIN [Concomitant]
     Active Substance: VANCOMYCIN
     Indication: Anti-infective therapy
     Dosage: 125 MG, 4X/DAY
     Route: 048

REACTIONS (4)
  - Syncope [Unknown]
  - Drug ineffective [Unknown]
  - Arthralgia [Unknown]
  - Rash pruritic [Unknown]
